FAERS Safety Report 10415993 (Version 1)
Quarter: 2014Q3

REPORT INFORMATION
  Report Type: Spontaneous
  Country: CN (occurrence: None)
  Receive Date: 20140826
  Receipt Date: 20140826
  Transmission Date: 20150326
  Serious: Yes (Hospitalization)
  Sender: FDA-Public Use
  Company Number: B1018230A

PATIENT
  Age: 62 Year
  Sex: Female
  Weight: 52.89 kg

DRUGS (1)
  1. PAROXETINE HYDROCHLORIDE TABLET (PAROXETINE HYDROCHLORIDE) [Suspect]
     Active Substance: PAROXETINE HYDROCHLORIDE
     Indication: DEPRESSION
     Route: 048
     Dates: start: 20130702, end: 20140809

REACTIONS (5)
  - Alanine aminotransferase increased [None]
  - Bilirubin conjugated increased [None]
  - Aspartate aminotransferase increased [None]
  - Blood albumin increased [None]
  - Blood bilirubin increased [None]

NARRATIVE: CASE EVENT DATE: 20130809
